FAERS Safety Report 12954223 (Version 1)
Quarter: 2016Q4

REPORT INFORMATION
  Report Type: Spontaneous
  Country: US (occurrence: US)
  Receive Date: 20161117
  Receipt Date: 20161117
  Transmission Date: 20170207
  Serious: Yes (Hospitalization)
  Sender: FDA-Public Use
  Company Number: None

PATIENT
  Age: 61 Year
  Sex: Female

DRUGS (1)
  1. COSENTYX [Suspect]
     Active Substance: SECUKINUMAB
     Indication: PSORIASIS
     Dosage: 300MG Q4W SUBQ
     Route: 058
     Dates: start: 20160610, end: 20161109

REACTIONS (2)
  - Cerebrovascular accident [None]
  - Cerebral artery thrombosis [None]

NARRATIVE: CASE EVENT DATE: 20161109
